FAERS Safety Report 8169017-8 (Version None)
Quarter: 2012Q1

REPORT INFORMATION
  Report Type: 
  Country: None (occurrence: None)
  Receive Date: 20120227
  Receipt Date: 20120217
  Transmission Date: 20120608
  Serious: Yes (Other)
  Sender: FDA-Public Use
  Company Number: PHHY2012ES014063

PATIENT
  Age: 43 Year
  Sex: Male

DRUGS (8)
  1. TACROLIMUS [Suspect]
     Indication: LIVER TRANSPLANT
     Dosage: 5 NG/ML
  2. RITONAVIR [Concomitant]
     Indication: HIV INFECTION
     Dosage: 200 MG, UNK
  3. FOSAMPRENAVIR CALCIUM [Concomitant]
     Indication: HIV INFECTION
     Dosage: 350 MG, Q12H
  4. EMTRICITABINE [Concomitant]
     Indication: HIV INFECTION
     Dosage: 200 MG, EVERY 2 DAYS
  5. MYCOPHENOLATE MOFETIL [Concomitant]
     Indication: LIVER TRANSPLANT
  6. SULFAMETHOXAZOLE + TRIMETHOPRIM [Concomitant]
     Dosage: 400 MG, EVERY 2 DAYS
  7. IMMUNE GLOBULIN (HUMAN) [Concomitant]
     Indication: HEPATITIS B
  8. TENOFOVIR [Concomitant]
     Indication: HIV INFECTION
     Dosage: 245 MG, UNK

REACTIONS (4)
  - HYPERKALAEMIA [None]
  - RENAL TUBULAR DISORDER [None]
  - METABOLIC ACIDOSIS [None]
  - RENAL TUBULAR ACIDOSIS [None]
